FAERS Safety Report 10187387 (Version 1)
Quarter: 2014Q2

REPORT INFORMATION
  Report Type: Spontaneous
  Country: US (occurrence: None)
  Receive Date: 20140521
  Receipt Date: 20140521
  Transmission Date: 20141212
  Serious: No
  Sender: FDA-Public Use
  Company Number: None

PATIENT
  Age: 4 Year
  Sex: Female

DRUGS (1)
  1. CEFDINIR [Suspect]
     Indication: OTITIS MEDIA
     Dates: start: 20120730, end: 20120808

REACTIONS (23)
  - Drug-induced liver injury [None]
  - Skin exfoliation [None]
  - Oropharyngeal pain [None]
  - Diarrhoea [None]
  - Vomiting [None]
  - Pyrexia [None]
  - Pruritus [None]
  - Swollen tongue [None]
  - Yellow skin [None]
  - Alanine aminotransferase increased [None]
  - Aspartate aminotransferase increased [None]
  - Blood glucose abnormal [None]
  - White blood cell count increased [None]
  - Shift to the left [None]
  - Rash [None]
  - Chromaturia [None]
  - Bilirubin conjugated increased [None]
  - Blood bilirubin increased [None]
  - Gamma-glutamyltransferase increased [None]
  - Urine ketone body present [None]
  - Protein urine present [None]
  - Eosinophilia [None]
  - Lip swelling [None]
